FAERS Safety Report 8844798 (Version 2)
Quarter: 2013Q2

REPORT INFORMATION
  Report Type: Spontaneous
  Country: US (occurrence: None)
  Receive Date: 20121002
  Receipt Date: 20121231
  Transmission Date: 20140414
  Serious: Yes (Hospitalization, Other)
  Sender: FDA-Public Use
  Company Number: RB-42566-2012

PATIENT
  Age: 55 Year
  Sex: Female

DRUGS (12)
  1. SUBOXONE [Suspect]
     Indication: PRODUCT USED FOR UNKNOWN INDICATION
     Dosage: DAILY DOSING DETAILS NOT PROVIDED UNKNOWN
     Dates: start: 20120412, end: 2012
  2. TYLENOL [Suspect]
     Indication: PRODUCT USED FOR UNKNOWN INDICATION
     Dosage: DOSING DETAILS UNKNOWN UNKNOWN
  3. ALCOHOL [Suspect]
     Indication: ALCOHOLISM
     Dosage: DOSAGE DETAILS UNKNOWN
  4. CAMPRAL [Concomitant]
  5. CELEBREX [Concomitant]
  6. PLAQUENIL [Concomitant]
  7. LYRICA [Concomitant]
  8. SERTRALINE [Concomitant]
  9. TOPAMAX [Concomitant]
  10. LISINOPRIL [Concomitant]
  11. METOCLOPRAMIDE [Concomitant]
  12. MAXALT [Concomitant]

REACTIONS (3)
  - Liver function test abnormal [None]
  - Jaundice [None]
  - Hepatitis [None]
